FAERS Safety Report 16242504 (Version 1)
Quarter: 2019Q2

REPORT INFORMATION
  Report Type: Spontaneous
  Country: US (occurrence: US)
  Receive Date: 20190322
  Receipt Date: 20190322
  Transmission Date: 20190711
  Serious: No
  Sender: FDA-Public Use
  Company Number: None

PATIENT
  Age: 70 Year
  Sex: Female
  Weight: 52.62 kg

DRUGS (1)
  1. ESTRADIOL VAGINAL INSERTS [Suspect]
     Active Substance: ESTRADIOL
     Route: 067

REACTIONS (4)
  - Device malfunction [None]
  - Medical device pain [None]
  - Vulvovaginal pain [None]
  - Product complaint [None]

NARRATIVE: CASE EVENT DATE: 20190306
